FAERS Safety Report 10722006 (Version 2)
Quarter: 2015Q1

REPORT INFORMATION
  Report Type: Spontaneous
  Country: US (occurrence: US)
  Receive Date: 20150119
  Receipt Date: 20150120
  Transmission Date: 20150721
  Serious: No
  Sender: FDA-Public Use
  Company Number: US-GLAXOSMITHKLINE-US2014GSK047486

PATIENT
  Age: 62 Year
  Sex: Female

DRUGS (4)
  1. MEDICATION UNKNOWN [Concomitant]
     Active Substance: UNSPECIFIED INGREDIENT
  2. FLOVENT [Suspect]
     Active Substance: FLUTICASONE PROPIONATE
     Indication: CHRONIC OBSTRUCTIVE PULMONARY DISEASE
     Dosage: UNK
     Route: 055
     Dates: start: 1994
  3. ANTIDEPRESSANT NAME UNKNOWN [Concomitant]
     Active Substance: UNSPECIFIED INGREDIENT
  4. TYLENOL [Concomitant]
     Active Substance: ACETAMINOPHEN

REACTIONS (5)
  - Therapy cessation [Unknown]
  - Migraine [Unknown]
  - Expired product administered [Unknown]
  - Medication error [Unknown]
  - Headache [Not Recovered/Not Resolved]

NARRATIVE: CASE EVENT DATE: 20141103
